FAERS Safety Report 19694248 (Version 1)
Quarter: 2021Q3

REPORT INFORMATION
  Report Type: Spontaneous
  Country: GB (occurrence: GB)
  Receive Date: 20210812
  Receipt Date: 20210812
  Transmission Date: 20211014
  Serious: Yes (Other)
  Sender: FDA-Public Use
  Company Number: NVSC2021GB172742

PATIENT
  Age: 74 Year
  Sex: Female
  Weight: 80 kg

DRUGS (19)
  1. CANDESARTAN. [Concomitant]
     Active Substance: CANDESARTAN
     Indication: HYPERTENSION
  2. IBUPROFEN. [Concomitant]
     Active Substance: IBUPROFEN
     Indication: PAIN
  3. GLYCERYL TRINITRATE [Concomitant]
     Active Substance: NITROGLYCERIN
     Indication: CHEST DISCOMFORT
  4. SIMVASTATIN. [Concomitant]
     Active Substance: SIMVASTATIN
     Indication: ILL-DEFINED DISORDER
     Dosage: 1 DF, QN (TAKE ONE AT NIGHT)
     Route: 065
     Dates: start: 20210727
  5. ATORVASTATIN [Suspect]
     Active Substance: ATORVASTATIN
     Indication: PRODUCT USED FOR UNKNOWN INDICATION
     Dosage: 20 MG, UNKNOWN
     Route: 065
     Dates: start: 20210727
  6. ATORVASTATIN [Concomitant]
     Active Substance: ATORVASTATIN
     Indication: BLOOD CHOLESTEROL INCREASED
  7. ALENDRONIC ACID [Concomitant]
     Active Substance: ALENDRONIC ACID
     Indication: ILL-DEFINED DISORDER
     Dosage: 1 DF, QW (TAKE ONE EACH WEEK ON THE SAME DAY OF EACH WEEK)
     Route: 065
     Dates: start: 20210323, end: 20210518
  8. BECONASE AQ [Concomitant]
     Active Substance: BECLOMETHASONE DIPROPIONATE MONOHYDRATE
     Indication: ILL-DEFINED DISORDER
     Dosage: 2 DF, BID (2 TWO PUFFS)
     Route: 065
     Dates: start: 20210323
  9. ATORVASTATIN [Concomitant]
     Active Substance: ATORVASTATIN
     Indication: ILL-DEFINED DISORDER
     Dosage: 1 DF, QN (TAKE ONE EACH NIGHT (TO HELP REDUCE CHOLESTEROL)
     Route: 065
     Dates: start: 20210323, end: 20210727
  10. CANDESARTAN. [Concomitant]
     Active Substance: CANDESARTAN
     Indication: ILL-DEFINED DISORDER
     Dosage: 1 DF, QD (TAKE ONE DAILY TO LOWER BLOOD PRESSURE AND TO P... )
     Route: 065
     Dates: start: 20210323
  11. IBUPROFEN. [Concomitant]
     Active Substance: IBUPROFEN
     Indication: ILL-DEFINED DISORDER
     Dosage: UNK UNK, TID (APPLY THREE TIMES DAILY FOR PAIN)
     Route: 065
     Dates: start: 20210727
  12. PANTOPRAZOLE [Concomitant]
     Active Substance: PANTOPRAZOLE
     Indication: ILL-DEFINED DISORDER
     Dosage: 1 DF, QD (TAKE ONE A DAY (TO REDUCE STOMACH ACID)
     Route: 065
     Dates: start: 20210323, end: 20210518
  13. COLECALCIFEROL [Concomitant]
     Active Substance: CHOLECALCIFEROL
     Indication: ILL-DEFINED DISORDER
     Dosage: 1 DF, QD (TAKE ONE DAILY)
     Route: 065
     Dates: start: 20210518
  14. PANTOPRAZOLE [Concomitant]
     Active Substance: PANTOPRAZOLE
     Indication: HYPERCHLORHYDRIA
  15. ASPIRIN. [Concomitant]
     Active Substance: ASPIRIN
     Indication: ILL-DEFINED DISORDER
     Dosage: 1 DF, QD (TAKE ONE DAILY (TO HELP THIN THE BLOOD)
     Route: 065
     Dates: start: 20210323
  16. ASPIRIN. [Concomitant]
     Active Substance: ASPIRIN
     Indication: ANTICOAGULANT THERAPY
  17. BISOPROLOL [Concomitant]
     Active Substance: BISOPROLOL
     Indication: ILL-DEFINED DISORDER
     Dosage: 1 DF, QD (TAKE ONE IN THE MORNING)
     Route: 065
     Dates: start: 20210323
  18. GLYCERYL TRINITRATE [Concomitant]
     Active Substance: NITROGLYCERIN
     Indication: ILL-DEFINED DISORDER
     Dosage: UNK UNK, PRN (SPRAY ONE PUFF AS NEEDED UNDER TONGUE FOR CHEST)
     Route: 065
     Dates: start: 20210323
  19. NITROFURANTOIN. [Concomitant]
     Active Substance: NITROFURANTOIN
     Indication: ILL-DEFINED DISORDER
     Dosage: 1 DF, BID (TAKE ONE TWICE DAILY (ANTIBIOTIC COURSE)
     Route: 065
     Dates: start: 20210708, end: 20210711

REACTIONS (1)
  - Abdominal discomfort [Recovering/Resolving]

NARRATIVE: CASE EVENT DATE: 20210727
